FAERS Safety Report 5701642-3 (Version None)
Quarter: 2008Q2

REPORT INFORMATION
  Report Type: 
  Country: None (occurrence: None)
  Receive Date: 20080411
  Receipt Date: 20080402
  Transmission Date: 20081010
  Serious: Yes (Other)
  Sender: FDA-Public Use
  Company Number: MX-JNJFOC-20080401225

PATIENT
  Age: 6 Month
  Sex: Female
  Weight: 8.25 kg

DRUGS (3)
  1. TYLENOL (CAPLET) [Suspect]
  2. TYLENOL (CAPLET) [Suspect]
     Indication: PYREXIA
  3. UNSPECIFIED MEDICATION [Concomitant]
     Indication: DIARRHOEA
     Route: 048

REACTIONS (1)
  - EXFOLIATIVE RASH [None]
